FAERS Safety Report 24088381 (Version 1)
Quarter: 2024Q3

REPORT INFORMATION
  Report Type: Spontaneous
  Country: US (occurrence: US)
  Receive Date: 20240715
  Receipt Date: 20240715
  Transmission Date: 20241017
  Serious: Yes (Hospitalization, Other)
  Sender: DR REDDYS
  Company Number: US-DRL-USA-LIT/USA/24/0009969

PATIENT
  Age: 52 Day

DRUGS (10)
  1. LEVETIRACETAM [Suspect]
     Active Substance: LEVETIRACETAM
     Indication: Status epilepticus
     Route: 048
  2. TOPIRAMATE [Suspect]
     Active Substance: TOPIRAMATE
     Indication: Status epilepticus
     Route: 048
  3. TOPIRAMATE [Suspect]
     Active Substance: TOPIRAMATE
     Route: 048
  4. LORAZEPAM [Concomitant]
     Active Substance: LORAZEPAM
     Indication: Status epilepticus
     Route: 042
  5. PHENOBARBITAL [Concomitant]
     Active Substance: PHENOBARBITAL
     Indication: Status epilepticus
     Route: 042
  6. PHENOBARBITAL [Concomitant]
     Active Substance: PHENOBARBITAL
     Route: 042
  7. FOSPHENYTOIN [Concomitant]
     Active Substance: FOSPHENYTOIN
     Indication: Status epilepticus
     Dosage: 20-MG PES/KG FOLLOWED BY 10-MG PES/KG
     Route: 042
  8. MIDAZOLAM [Concomitant]
     Active Substance: MIDAZOLAM
     Indication: Status epilepticus
     Dosage: CONTINUOUS INFUSION AT 0.1 MG/KG/HR WHICH WAS TITRATED BY 0.1 MG/KG/HR TO 0.5 MG/KG/HR OVER 12 HOURS
  9. KETAMINE [Concomitant]
     Active Substance: KETAMINE
     Indication: Status epilepticus
     Dosage: 1-MG/KG IV BOLUS WAS GIVEN OVER 2 TO 3 MINUTES, FOLLOWED BY INITIATION OF A KETAMINE CONTINUOUS INFU
     Route: 040
  10. KETAMINE [Concomitant]
     Active Substance: KETAMINE
     Dosage: CONTINUOUS KETAMINE INFUSION AT 1 MG/KG/HR

REACTIONS (1)
  - Drug ineffective for unapproved indication [Unknown]
